FAERS Safety Report 25885302 (Version 1)
Quarter: 2025Q4

REPORT INFORMATION
  Report Type: Spontaneous
  Country: US (occurrence: US)
  Receive Date: 20251006
  Receipt Date: 20251006
  Transmission Date: 20260117
  Serious: No
  Sender: SANOFI AVENTIS
  Company Number: US-SA-2025SA295438

PATIENT
  Age: 64 Year
  Sex: Female

DRUGS (5)
  1. DUPIXENT [Suspect]
     Active Substance: DUPILUMAB
     Indication: Eczema
     Dosage: 600 MG, 1X
     Route: 058
     Dates: start: 202405, end: 202405
  2. DUPIXENT [Suspect]
     Active Substance: DUPILUMAB
     Dosage: 300 MG, QOW
     Route: 058
     Dates: start: 2024
  3. ROFLUMILAST [Suspect]
     Active Substance: ROFLUMILAST
     Indication: Eczema
     Dosage: UNK
     Route: 065
     Dates: start: 2025
  4. ROFLUMILAST [Suspect]
     Active Substance: ROFLUMILAST
     Indication: Ear pruritus
  5. ROFLUMILAST [Suspect]
     Active Substance: ROFLUMILAST
     Indication: Skin exfoliation

REACTIONS (4)
  - Headache [Unknown]
  - Eczema [Recovering/Resolving]
  - Ear pruritus [Unknown]
  - Skin exfoliation [Unknown]

NARRATIVE: CASE EVENT DATE: 20250101
